FAERS Safety Report 8477031-8 (Version None)
Quarter: 2012Q2

REPORT INFORMATION
  Report Type: 
  Country: None (occurrence: None)
  Receive Date: 20120629
  Receipt Date: 20120618
  Transmission Date: 20120825
  Serious: Yes (Other)
  Sender: FDA-Public Use
  Company Number: NL-AMGEN-NLDSP2012039038

PATIENT
  Sex: Female

DRUGS (15)
  1. AMLODIPINE [Concomitant]
     Dosage: UNK
  2. OXAZEPAM [Concomitant]
     Dosage: UNK
  3. SPIRIVA [Concomitant]
     Dosage: UNK
  4. OMEPRAZOLE [Concomitant]
     Dosage: UNK
  5. PAROXETINE HCL [Concomitant]
     Dosage: UNK
  6. SYMBICORT [Concomitant]
     Dosage: UNK
  7. TRIAMCINOLONE [Concomitant]
     Dosage: UNK
  8. ENBREL [Suspect]
     Indication: RHEUMATOID ARTHRITIS
     Dosage: 50 MG, WEEKLY
     Dates: start: 20110531
  9. PANADOL                            /00020001/ [Concomitant]
     Dosage: UNK
  10. ENALAPRIL MALEATE [Concomitant]
     Dosage: UNK
  11. METOPROLOL SUCCINATE [Concomitant]
     Dosage: UNK
  12. FOLIC ACID [Concomitant]
     Dosage: UNK
  13. PREDNISONE TAB [Concomitant]
     Dosage: UNK
  14. CALCIUM CARBONATE [Concomitant]
     Dosage: UNK
  15. VASELINE                           /00473501/ [Concomitant]
     Dosage: UNK

REACTIONS (1)
  - BURNS THIRD DEGREE [None]
